FAERS Safety Report 12696579 (Version 1)
Quarter: 2016Q3

REPORT INFORMATION
  Report Type: Spontaneous
  Country: BR (occurrence: BR)
  Receive Date: 20160830
  Receipt Date: 20160830
  Transmission Date: 20161109
  Serious: Yes (Other)
  Sender: FDA-Public Use
  Company Number: BR-PFIZER INC-2016402058

PATIENT
  Age: 33 Year
  Sex: Female
  Weight: 68 kg

DRUGS (7)
  1. MYTEDOM [Concomitant]
     Active Substance: METHADONE HYDROCHLORIDE
     Indication: HEADACHE
     Dosage: 10 MG (2 TABLETS OF 5MG), DAILY
     Route: 048
     Dates: start: 2016
  2. FRONTAL [Concomitant]
     Active Substance: ALPRAZOLAM
     Indication: HEADACHE
     Dosage: 2 TABLETS OF 1MG (2MG), DAILY
     Route: 048
     Dates: start: 2006
  3. TRILEPTAL [Concomitant]
     Active Substance: OXCARBAZEPINE
     Indication: FACIAL PAIN
     Dosage: 2 TABLETS, DAILY
     Route: 048
     Dates: start: 201604
  4. STILNOX [Concomitant]
     Active Substance: ZOLPIDEM TARTRATE
     Indication: FIBROMYALGIA
     Dosage: 1 TABLET, DAILY
     Route: 048
     Dates: start: 2010
  5. EGIDE [Concomitant]
     Indication: MIGRAINE
     Dosage: 2 TABLETS (150MG) DAILY
     Route: 048
     Dates: start: 2010
  6. LYRICA [Suspect]
     Active Substance: PREGABALIN
     Indication: FIBROMYALGIA
     Dosage: 2 TABLETS OF 150MG (300MG), DAILY
     Route: 048
     Dates: start: 2010
  7. VELIJA [Concomitant]
     Active Substance: DULOXETINE HYDROCHLORIDE
     Indication: FIBROMYALGIA
     Dosage: 2 TABLET, DAILY
     Route: 048
     Dates: start: 2010

REACTIONS (6)
  - Migraine [Unknown]
  - Spinal column injury [Unknown]
  - Craniocerebral injury [Unknown]
  - Stress [Unknown]
  - Myofascial pain syndrome [Unknown]
  - Road traffic accident [Unknown]

NARRATIVE: CASE EVENT DATE: 20160810
